FAERS Safety Report 11497822 (Version 4)
Quarter: 2016Q3

REPORT INFORMATION
  Report Type: Spontaneous
  Country: US (occurrence: US)
  Receive Date: 20150911
  Receipt Date: 20160916
  Transmission Date: 20161109
  Serious: Yes (Hospitalization)
  Sender: FDA-Public Use
  Company Number: US-DSJP-DSU-2015-120644

PATIENT

DRUGS (2)
  1. BENICAR HCT [Suspect]
     Active Substance: HYDROCHLOROTHIAZIDE\OLMESARTAN MEDOXOMIL
     Indication: HYPERTENSION
     Dosage: 40MG/12.5 MG, QD
     Route: 048
     Dates: start: 2012, end: 2013
  2. BENICAR [Suspect]
     Active Substance: OLMESARTAN MEDOXOMIL
     Indication: PRODUCT USED FOR UNKNOWN INDICATION
     Dosage: UNK

REACTIONS (9)
  - Diverticulum [Unknown]
  - Dyspepsia [Unknown]
  - Mesenteritis [Unknown]
  - Irritable bowel syndrome [Unknown]
  - Weight increased [Unknown]
  - Anxiety [Unknown]
  - Rash [Unknown]
  - Malabsorption [Not Recovered/Not Resolved]
  - Change of bowel habit [Unknown]

NARRATIVE: CASE EVENT DATE: 2013
